FAERS Safety Report 5410984-0 (Version None)
Quarter: 2007Q3

REPORT INFORMATION
  Report Type: 
  Country: None (occurrence: None)
  Receive Date: 20070810
  Receipt Date: 20070629
  Transmission Date: 20080115
  Serious: No
  Sender: FDA-Public Use
  Company Number: A0661024A

PATIENT

DRUGS (1)
  1. ALTABAX [Suspect]
     Indication: IMPETIGO
     Route: 061
     Dates: start: 20070101, end: 20070101

REACTIONS (2)
  - IMPETIGO [None]
  - SKIN IRRITATION [None]
